FAERS Safety Report 8014591-5 (Version None)
Quarter: 2011Q4

REPORT INFORMATION
  Report Type: 
  Country: None (occurrence: None)
  Receive Date: 20111223
  Receipt Date: 20111208
  Transmission Date: 20120403
  Serious: Yes (Hospitalization)
  Sender: FDA-Public Use
  Company Number: TOR-2011-0051

PATIENT
  Age: 83 Year
  Sex: Female

DRUGS (3)
  1. FARESTON [Suspect]
     Indication: BREAST CANCER
     Dosage: 120 MG ORAL
     Route: 048
     Dates: start: 20110828, end: 20110903
  2. FARESTON [Suspect]
     Indication: BREAST CANCER
     Dosage: 120 MG ORAL
     Route: 048
     Dates: start: 20110904, end: 20111026
  3. TS-1 (TEGAFUR) 80 MG [Suspect]
     Indication: BREAST CANCER
     Dosage: 80 MG ORAL
     Route: 048
     Dates: start: 20110828, end: 20110903

REACTIONS (2)
  - WHITE BLOOD CELL COUNT DECREASED [None]
  - DIARRHOEA [None]
